FAERS Safety Report 8619478-2 (Version None)
Quarter: 2012Q3

REPORT INFORMATION
  Report Type: 
  Country: None (occurrence: None)
  Receive Date: 20120824
  Receipt Date: 20120817
  Transmission Date: 20120928
  Serious: Yes (Other)
  Sender: FDA-Public Use
  Company Number: US-PFIZER INC-2012090893

PATIENT
  Age: 81 Year
  Sex: Male

DRUGS (2)
  1. XYNTHA [Suspect]
     Indication: FACTOR VIII DEFICIENCY
     Dosage: UNK, AS NEEDED
     Dates: start: 20080101
  2. XYNTHA [Suspect]
     Dosage: 2000 IU, AS NEEDED
     Dates: start: 20080101

REACTIONS (3)
  - HIP FRACTURE [None]
  - CEREBROVASCULAR ACCIDENT [None]
  - DYSGRAPHIA [None]
